FAERS Safety Report 18215564 (Version 1)
Quarter: 2020Q3

REPORT INFORMATION
  Report Type: Spontaneous
  Country: FR (occurrence: FR)
  Receive Date: 20200901
  Receipt Date: 20200901
  Transmission Date: 20201103
  Serious: Yes (Other)
  Sender: FDA-Public Use
  Company Number: FR-SUN PHARMACEUTICAL INDUSTRIES LTD-2020R1-256997

PATIENT
  Age: 57 Year
  Sex: Female

DRUGS (1)
  1. DIVALPROEX [Suspect]
     Active Substance: DIVALPROEX SODIUM
     Indication: BIPOLAR DISORDER
     Dosage: UNK
     Route: 065

REACTIONS (1)
  - Eosinophilic pneumonia [Recovered/Resolved]
